FAERS Safety Report 20636050 (Version 1)
Quarter: 2022Q1

REPORT INFORMATION
  Report Type: Spontaneous
  Country: NL (occurrence: NL)
  Receive Date: 20220325
  Receipt Date: 20220325
  Transmission Date: 20220423
  Serious: Yes (Other)
  Sender: FDA-Public Use
  Company Number: None

PATIENT
  Sex: Female
  Weight: 62 kg

DRUGS (2)
  1. TRAMADOL [Suspect]
     Active Substance: TRAMADOL
     Indication: Back pain
     Dosage: 1 X, TRAMADOL CAPSULE 50MG / BRAND NAME NOT SPECIFIED,MEDICINE PRESCRIBED BY DOCTOR: YES
     Route: 065
     Dates: start: 202203, end: 20220304
  2. FLUTICASONE FUROATE\VILANTEROL TRIFENATATE [Concomitant]
     Active Substance: FLUTICASONE FUROATE\VILANTEROL TRIFENATATE
     Dosage: FLUTICASON/VILANTEROL INHPDR 92/22UG/DO / RELVAR ELLIPTA INHPDR 92/22MCG 30DO INHALATION POWDER, 92/

REACTIONS (1)
  - Anaphylactic shock [Recovered/Resolved]
